FAERS Safety Report 5736962-X (Version None)
Quarter: 2008Q2

REPORT INFORMATION
  Report Type: 
  Country: None (occurrence: None)
  Receive Date: 20080512
  Receipt Date: 20080512
  Transmission Date: 20081010
  Serious: Yes (Other)
  Sender: FDA-Public Use
  Company Number: None

PATIENT
  Sex: Female
  Weight: 77.1115 kg

DRUGS (1)
  1. POTASSIUM CHLORIDE [Suspect]
     Dosage: 1 DAILY PATCH 5418
     Dates: start: 20080213, end: 20080321

REACTIONS (2)
  - DYSPNOEA [None]
  - MUSCLE SPASMS [None]
